FAERS Safety Report 24525046 (Version 1)
Quarter: 2024Q4

REPORT INFORMATION
  Report Type: Spontaneous
  Country: CA (occurrence: CA)
  Receive Date: 20241019
  Receipt Date: 20241019
  Transmission Date: 20250115
  Serious: Yes (Disabling, Other)
  Sender: CELLTRION
  Company Number: CA-CELLTRION INC.-2024CA024961

PATIENT

DRUGS (7)
  1. YUFLYMA [Suspect]
     Active Substance: ADALIMUMAB-AATY
     Indication: Rheumatoid arthritis
     Dosage: 40.0 MILLIGRAM, 1 EVERY 2 WEEKS
     Route: 058
  2. YUFLYMA [Suspect]
     Active Substance: ADALIMUMAB-AATY
     Dosage: 40.0 MILLIGRAM, 1 EVERY 2 WEEKS
     Route: 058
  3. ALEVE [Concomitant]
     Active Substance: NAPROXEN SODIUM
  4. IBUPROFEN [Concomitant]
     Active Substance: IBUPROFEN
  5. LEFLUNOMIDE [Concomitant]
     Active Substance: LEFLUNOMIDE
  6. TYLENOL [Concomitant]
     Active Substance: ACETAMINOPHEN
  7. TYLENOL ARTHRITIS PAIN [Concomitant]
     Active Substance: ACETAMINOPHEN

REACTIONS (10)
  - Fibromyalgia [Not Recovered/Not Resolved]
  - Oropharyngeal pain [Not Recovered/Not Resolved]
  - Pain in jaw [Not Recovered/Not Resolved]
  - Syncope [Not Recovered/Not Resolved]
  - Malaise [Not Recovered/Not Resolved]
  - Arthralgia [Not Recovered/Not Resolved]
  - Headache [Not Recovered/Not Resolved]
  - Pain in extremity [Not Recovered/Not Resolved]
  - Pruritus [Not Recovered/Not Resolved]
  - Intentional dose omission [Not Recovered/Not Resolved]
